FAERS Safety Report 7715120-3 (Version None)
Quarter: 2011Q3

REPORT INFORMATION
  Report Type: 
  Country: None (occurrence: None)
  Receive Date: 20110829
  Receipt Date: 20110817
  Transmission Date: 20111222
  Serious: Yes (Hospitalization)
  Sender: FDA-Public Use
  Company Number: PHHY2011BR74366

PATIENT
  Sex: Female

DRUGS (7)
  1. SOMALGIN [Concomitant]
     Indication: HYPERTENSION
     Dosage: 1 DF, DAILY
     Dates: start: 20090401
  2. EXELON [Suspect]
     Indication: DEMENTIA ALZHEIMER'S TYPE
     Route: 062
  3. EXELON [Suspect]
     Dosage: 4.5 MG, BID
  4. OMEPRAZOLE [Concomitant]
     Indication: PROPHYLAXIS
     Dosage: 1 DF, DAILY
     Dates: start: 20090401
  5. SERTRALINE HYDROCHLORIDE [Concomitant]
     Indication: HYPERTENSION
     Dosage: 1 DF, DAILY
     Dates: start: 20090401
  6. SIMVASTATIN [Concomitant]
     Indication: ARTERIAL DISORDER
     Dosage: 20 MG, UNK
     Dates: start: 20090401
  7. ENALAPRIL MALEATE [Concomitant]
     Indication: HYPERTENSION
     Dosage: 2 DF, DAILY

REACTIONS (7)
  - HYPERTENSION [None]
  - MEMORY IMPAIRMENT [None]
  - THERAPEUTIC RESPONSE DECREASED [None]
  - CONFUSIONAL STATE [None]
  - AGITATION [None]
  - ISCHAEMIA [None]
  - URINARY TRACT INFECTION [None]
